FAERS Safety Report 11767688 (Version 2)
Quarter: 2015Q4

REPORT INFORMATION
  Report Type: Spontaneous
  Country: JP (occurrence: JP)
  Receive Date: 20151123
  Receipt Date: 20151217
  Transmission Date: 20160304
  Serious: Yes (Hospitalization)
  Sender: FDA-Public Use
  Company Number: JP-SA-2015SA172207

PATIENT
  Age: 70 Year
  Sex: Female

DRUGS (12)
  1. AMARYL [Suspect]
     Active Substance: GLIMEPIRIDE
     Route: 048
  2. URSO [Concomitant]
     Active Substance: URSODIOL
  3. FLOMOX [Concomitant]
     Active Substance: CEFCAPENE PIVOXIL HYDROCHLORIDE HYDRATE
     Dosage: DOSE: 900 (UNITS NOT REPORTED).
  4. BAYASPIRIN [Concomitant]
     Active Substance: ASPIRIN
     Dosage: DOSE: 100 (UNITS NOT REPORTED)
  5. KAYEXALATE [Concomitant]
     Active Substance: SODIUM POLYSTYRENE SULFONATE
     Dosage: FORM: DRY SYRUP
  6. EQUA [Concomitant]
     Active Substance: VILDAGLIPTIN
  7. LENDORMIN D [Concomitant]
     Active Substance: BROTIZOLAM
     Dosage: DOSE: 0.25 (UNITS NOT REPORTED).
  8. LOXOPROFEN [Concomitant]
     Active Substance: LOXOPROFEN
     Dosage: DOSE: 60 (UNITS NOT REPORTED).
  9. ZYLORIC [Concomitant]
     Active Substance: ALLOPURINOL
  10. SODIUM BICARBONATE. [Concomitant]
     Active Substance: SODIUM BICARBONATE
  11. LIPITOR [Concomitant]
     Active Substance: ATORVASTATIN CALCIUM
  12. AMLODIPINE [Concomitant]
     Active Substance: AMLODIPINE BESYLATE

REACTIONS (1)
  - Acidosis [Unknown]
